FAERS Safety Report 7630219 (Version 7)
Quarter: 2013Q2

REPORT INFORMATION
  Report Type: Spontaneous
  Country: US (occurrence: US)
  Receive Date: 20101014
  Receipt Date: 20130510
  Transmission Date: 20140414
  Serious: Yes (Disabling, Other)
  Sender: FDA-Public Use
  Company Number: PHHY2010US62140

PATIENT
  Age: 54 Year
  Sex: Female

DRUGS (22)
  1. RECLAST [Suspect]
     Indication: OSTEOPOROSIS
     Dosage: 5 MG/100 ML ONCE A YEAR
     Route: 042
     Dates: start: 20100816
  2. RECLAST [Suspect]
     Dosage: 5 MG/100 ML ONCE A YEAR
     Route: 042
  3. RECLAST [Suspect]
     Dosage: 5 MG/100 ML ONCE A YEAR
     Route: 042
  4. PREDNISONE [Suspect]
  5. BENADRYL [Suspect]
     Dosage: UNK UKN, UNK
  6. LYRICA [Suspect]
  7. ALEVE [Suspect]
  8. ADVIL [Suspect]
  9. AMITRIPTYLINE [Concomitant]
     Indication: SLEEP DISORDER
     Dosage: 10 MG, QD
     Route: 048
  10. ANXIOLYTICS [Concomitant]
     Indication: ANXIETY
  11. ZOLPIDEM [Concomitant]
     Indication: INSOMNIA
     Dosage: 10 MG, QD
     Route: 048
  12. DENAVIR [Concomitant]
     Dosage: UNK UKN, UNK
     Route: 061
  13. NIASPAN [Concomitant]
     Dosage: 500 MG, QD
     Route: 048
  14. ZETIA [Concomitant]
     Dosage: 10 MG, QD
     Route: 048
  15. SERTRALINE [Concomitant]
     Indication: ANXIETY
     Dosage: 50 MG, QD
     Route: 048
  16. OMEPRAZOLE [Concomitant]
     Indication: DYSPEPSIA
     Dosage: 20 MG, QD
     Route: 048
  17. PROMETHAZINE [Concomitant]
     Indication: NAUSEA
     Dosage: 25 MG, PRN
     Route: 048
  18. GABAPENTIN [Concomitant]
     Dosage: 100 MG, TID
     Route: 048
  19. CALCIUM [Concomitant]
     Dosage: 500 MG, BID
     Route: 048
  20. VITAMIN D [Concomitant]
     Dosage: UNK UKN, UNK
  21. FISH OIL [Concomitant]
     Dosage: 1000 MG, TID
  22. LORAZEPAM [Concomitant]
     Dosage: 0.5 MG, TID
     Route: 048

REACTIONS (21)
  - Burning sensation [Unknown]
  - Muscle twitching [Not Recovered/Not Resolved]
  - Myalgia [Not Recovered/Not Resolved]
  - Paraesthesia [Not Recovered/Not Resolved]
  - Nerve injury [Not Recovered/Not Resolved]
  - Hypoaesthesia [Not Recovered/Not Resolved]
  - Neuralgia [Not Recovered/Not Resolved]
  - Inability to crawl [Not Recovered/Not Resolved]
  - Emotional distress [Unknown]
  - Pain [Not Recovered/Not Resolved]
  - Hair disorder [Not Recovered/Not Resolved]
  - Blood magnesium increased [Not Recovered/Not Resolved]
  - Visual impairment [Unknown]
  - Facial pain [Unknown]
  - Tooth loss [Unknown]
  - Toothache [Unknown]
  - Panic attack [Unknown]
  - Depression [Unknown]
  - Muscle spasms [Not Recovered/Not Resolved]
  - Pain in extremity [Unknown]
  - Arthralgia [Unknown]
